FAERS Safety Report 9352968 (Version 1)
Quarter: 2013Q2

REPORT INFORMATION
  Report Type: Spontaneous
  Country: CN (occurrence: CN)
  Receive Date: 20130618
  Receipt Date: 20130618
  Transmission Date: 20140414
  Serious: Yes (Hospitalization)
  Sender: FDA-Public Use
  Company Number: CN-JNJFOC-20130606166

PATIENT
  Sex: Female

DRUGS (4)
  1. TYLENOL COLD [Suspect]
     Indication: CHILLS
     Route: 048
     Dates: start: 20111206, end: 20111208
  2. TYLENOL COLD [Suspect]
     Indication: TREMOR
     Route: 048
     Dates: start: 20111206, end: 20111208
  3. TYLENOL COLD [Suspect]
     Indication: PYREXIA
     Route: 048
     Dates: start: 20111206, end: 20111208
  4. CEPHRADINE [Concomitant]
     Indication: PRODUCT USED FOR UNKNOWN INDICATION
     Route: 065

REACTIONS (9)
  - Drug-induced liver injury [Recovering/Resolving]
  - Hypertension [Unknown]
  - Foot fracture [Unknown]
  - Fatigue [None]
  - Dyspepsia [None]
  - Gastrooesophageal reflux disease [None]
  - Diarrhoea [None]
  - Constipation [None]
  - Oedema peripheral [None]
